FAERS Safety Report 9111059 (Version 1)
Quarter: 2013Q1

REPORT INFORMATION
  Report Type: Spontaneous
  Country: US (occurrence: US)
  Receive Date: 20130219
  Receipt Date: 20130219
  Transmission Date: 20140127
  Serious: No
  Sender: FDA-Public Use
  Company Number: US-BRISTOL-MYERS SQUIBB COMPANY-16863177

PATIENT
  Age: 57 Year
  Sex: Male

DRUGS (1)
  1. ORENCIA [Suspect]
     Indication: RHEUMATOID ARTHRITIS
     Dosage: LAST INFUSION:08AUG2012
     Route: 042
     Dates: start: 20120724

REACTIONS (3)
  - Inguinal mass [Not Recovered/Not Resolved]
  - Night sweats [Not Recovered/Not Resolved]
  - Somnolence [Not Recovered/Not Resolved]
